FAERS Safety Report 5493942-X (Version None)
Quarter: 2007Q4

REPORT INFORMATION
  Report Type: 
  Country: None (occurrence: None)
  Receive Date: 20071023
  Receipt Date: 20070510
  Transmission Date: 20080405
  Serious: Yes (Other)
  Sender: FDA-Public Use
  Company Number: US-MERCK-0310USA02861

PATIENT
  Age: 77 Year
  Sex: Female

DRUGS (1)
  1. FOSAMAX [Suspect]
     Route: 048
     Dates: start: 20030901, end: 20070312

REACTIONS (8)
  - ABDOMINAL DISTENSION [None]
  - ERUCTATION [None]
  - FAECES DISCOLOURED [None]
  - FLATULENCE [None]
  - GASTROOESOPHAGEAL REFLUX DISEASE [None]
  - HIP FRACTURE [None]
  - NAIL DISORDER [None]
  - SPINAL FRACTURE [None]
